FAERS Safety Report 4929061-8 (Version None)
Quarter: 2006Q1

REPORT INFORMATION
  Report Type: 
  Country: None (occurrence: None)
  Receive Date: 20060301
  Receipt Date: 20050602
  Transmission Date: 20060701
  Serious: Yes (Hospitalization)
  Sender: FDA-Public Use
  Company Number: US-MERCK-0506USA00732

PATIENT
  Age: 62 Year
  Sex: Female
  Weight: 70 kg

DRUGS (5)
  1. VIOXX [Suspect]
     Indication: OSTEOARTHRITIS
     Route: 048
     Dates: start: 20001001, end: 20040901
  2. CELEBREX [Concomitant]
     Route: 065
  3. LOPRESSOR [Concomitant]
     Route: 065
  4. DARVOCET-N 50 [Concomitant]
     Route: 048
  5. PREMPRO [Concomitant]
     Route: 065

REACTIONS (9)
  - ACUTE MYOCARDIAL INFARCTION [None]
  - CHEST PAIN [None]
  - CORONARY ARTERY DISEASE [None]
  - DIZZINESS [None]
  - DYSPNOEA [None]
  - HYPERTENSION [None]
  - HYPOAESTHESIA [None]
  - INTRACARDIAC THROMBUS [None]
  - PARAESTHESIA [None]
